FAERS Safety Report 7139565-8 (Version None)
Quarter: 2010Q4

REPORT INFORMATION
  Report Type: 
  Country: None (occurrence: None)
  Receive Date: 20101206
  Receipt Date: 20101201
  Transmission Date: 20110411
  Serious: Yes (Death)
  Sender: FDA-Public Use
  Company Number: GB-MERCK-1012GBR00016

PATIENT
  Age: 35 Year
  Sex: Male
  Weight: 135 kg

DRUGS (6)
  1. JANUVIA [Suspect]
     Route: 048
  2. AMLODIPINE [Concomitant]
     Route: 048
  3. FLUOXETINE [Concomitant]
     Route: 048
  4. INSULIN ASPART, BIPHASIC ISOPHANE [INJECTION] [Concomitant]
     Route: 058
     Dates: start: 20091010
  5. PROCYCLIDINE HYDROCHLORIDE [Concomitant]
     Route: 048
  6. RISPERIDONE [Concomitant]
     Route: 048

REACTIONS (1)
  - SUDDEN DEATH [None]
